FAERS Safety Report 6065711-3 (Version None)
Quarter: 2009Q1

REPORT INFORMATION
  Report Type: 
  Country: None (occurrence: None)
  Receive Date: 20090130
  Receipt Date: 20081202
  Transmission Date: 20090719
  Serious: Yes (Other)
  Sender: FDA-Public Use
  Company Number: PHHY2008NO18516

PATIENT
  Sex: Male

DRUGS (2)
  1. CLOZAPINE [Suspect]
     Dosage: 150 MG + 200 MG
  2. CITALOPRAM HYDROBROMIDE [Suspect]
     Dosage: 40 MG

REACTIONS (1)
  - ANTIPSYCHOTIC DRUG LEVEL INCREASED [None]
